FAERS Safety Report 17555676 (Version 1)
Quarter: 2020Q1

REPORT INFORMATION
  Report Type: Spontaneous
  Country: DE (occurrence: DE)
  Receive Date: 20200318
  Receipt Date: 20200318
  Transmission Date: 20200409
  Serious: Yes (Other)
  Sender: FDA-Public Use
  Company Number: DE-PFIZER INC-2020113683

PATIENT

DRUGS (1)
  1. CYTOTEC [Suspect]
     Active Substance: MISOPROSTOL
     Indication: LABOUR INDUCTION
     Dosage: 1ST DOSE (16: 55H) 25UG, THE NEXT DAY THE 2ND DOSE (08H) 50UG, 3RD DOSE (12H) 100UG
     Route: 064
     Dates: start: 20130302, end: 20130303

REACTIONS (3)
  - Foetal exposure during pregnancy [Unknown]
  - Foetal heart rate decreased [Recovered/Resolved]
  - Amniocentesis abnormal [Unknown]

NARRATIVE: CASE EVENT DATE: 20130302
